FAERS Safety Report 6023636-3 (Version None)
Quarter: 2008Q4

REPORT INFORMATION
  Report Type: 
  Country: None (occurrence: None)
  Receive Date: 20081229
  Receipt Date: 20081229
  Transmission Date: 20090506
  Serious: Yes (Life-Threatening, Hospitalization)
  Sender: FDA-Public Use
  Company Number: None

PATIENT
  Age: 55 Year
  Sex: Female
  Weight: 68.0396 kg

DRUGS (2)
  1. ULTRAM [Suspect]
     Indication: BACK PAIN
     Dosage: ONE DAILY LONG HYDROCODONE ONE DAILY INTRACORONARY
     Route: 022
     Dates: start: 20080122, end: 20080128
  2. ULTRAM [Suspect]
     Indication: INTERVERTEBRAL DISC PROTRUSION
     Dosage: ONE DAILY LONG HYDROCODONE ONE DAILY INTRACORONARY
     Route: 022
     Dates: start: 20080122, end: 20080128

REACTIONS (13)
  - ASTHENIA [None]
  - CARDIAC ARREST [None]
  - CARDIAC DISORDER [None]
  - DRUG DOSE OMISSION [None]
  - FACE INJURY [None]
  - FALL [None]
  - FEELING ABNORMAL [None]
  - HEART RATE ABNORMAL [None]
  - IMPAIRED WORK ABILITY [None]
  - LOSS OF CONSCIOUSNESS [None]
  - LUNG DISORDER [None]
  - TREATMENT NONCOMPLIANCE [None]
  - URINARY INCONTINENCE [None]
